FAERS Safety Report 16749680 (Version 1)
Quarter: 2019Q3

REPORT INFORMATION
  Report Type: Report from Study
  Country: US (occurrence: US)
  Receive Date: 20190828
  Receipt Date: 20190828
  Transmission Date: 20191005
  Serious: Yes (Other)
  Sender: FDA-Public Use
  Company Number: US-MYLANLABS-2019M1080615

PATIENT
  Sex: Female

DRUGS (2)
  1. PACLITAXEL. [Suspect]
     Active Substance: PACLITAXEL
     Indication: NEOPLASM MALIGNANT
     Dosage: A SCHEDULE OF 3 WEEKS ADMINISTRATION FOLLOWED BY 1 WEEK OFF IN A 28-DAY CYCLE
     Route: 065
  2. CAMPTOTHECIN [Suspect]
     Active Substance: CAMPTOTHECIN
     Indication: NEOPLASM MALIGNANT
     Dosage: EVERY TWO WEEKS IN A 28-DAY CYCLE
     Route: 065

REACTIONS (4)
  - Urinary tract infection [Unknown]
  - Cystitis [Unknown]
  - Hypokalaemia [Unknown]
  - Hypertension [Unknown]
